FAERS Safety Report 7447487-8 (Version None)
Quarter: 2011Q2

REPORT INFORMATION
  Report Type: 
  Country: None (occurrence: None)
  Receive Date: 20110421
  Receipt Date: 20110412
  Transmission Date: 20111010
  Serious: Yes (Hospitalization, Other)
  Sender: FDA-Public Use
  Company Number: 1000019806

PATIENT
  Age: 51 Year
  Sex: Male
  Weight: 90 kg

DRUGS (2)
  1. CITALOPRAM (CITALOPRAM HYDROBROMIDE) (20 MILLIGRAM, TABLETS) [Suspect]
     Dosage: (400 MG,ONCE), ORAL
     Route: 048
     Dates: start: 20110328, end: 20110328
  2. MIRTAZAPINE [Suspect]
     Dosage: (600 MG,ONCE),ORAL
     Route: 048
     Dates: start: 20110328, end: 20110328

REACTIONS (5)
  - POISONING [None]
  - RESTLESSNESS [None]
  - MULTIPLE DRUG OVERDOSE INTENTIONAL [None]
  - MUSCLE SPASMS [None]
  - SUICIDE ATTEMPT [None]
